FAERS Safety Report 12434345 (Version 1)
Quarter: 2016Q2

REPORT INFORMATION
  Report Type: Spontaneous
  Country: GB (occurrence: GB)
  Receive Date: 20160603
  Receipt Date: 20160603
  Transmission Date: 20160815
  Serious: Yes (Disabling)
  Sender: FDA-Public Use
  Company Number: GB-FERRINGPH-2016FE02384

PATIENT

DRUGS (12)
  1. ZOMACTON [Suspect]
     Active Substance: SOMATROPIN
     Dosage: 0.9 MG,
     Route: 058
     Dates: start: 20151230, end: 20160413
  2. ASPIRIN                            /00002701/ [Concomitant]
     Active Substance: ASPIRIN
  3. PREDNISOLONE. [Concomitant]
     Active Substance: PREDNISOLONE
  4. URSODEOXYCHOLIC ACID [Concomitant]
     Active Substance: URSODIOL
  5. ALFACALCIDOL [Concomitant]
     Active Substance: ALFACALCIDOL
  6. AUGMENTIN [Concomitant]
     Active Substance: AMOXICILLIN\CLAVULANATE POTASSIUM
  7. MAGNESIUM [Concomitant]
     Active Substance: MAGNESIUM
  8. OMEPRAZOLE. [Concomitant]
     Active Substance: OMEPRAZOLE
  9. TACROLIMUS. [Concomitant]
     Active Substance: TACROLIMUS
     Indication: LIVER TRANSPLANT
     Dates: start: 201107
  10. ZOMACTON [Suspect]
     Active Substance: SOMATROPIN
     Indication: CHRONIC KIDNEY DISEASE
     Dosage: DOSE WAS INCREASED IN CLINIC TO 1.2 MG
     Route: 058
     Dates: start: 20151230, end: 20160413
  11. MYCOPHENOLATE MOFETIL. [Concomitant]
     Active Substance: MYCOPHENOLATE MOFETIL
  12. NUTRIENTS NOS [Suspect]
     Active Substance: UNSPECIFIED INGREDIENT

REACTIONS (3)
  - Pruritus generalised [Recovering/Resolving]
  - Blister rupture [Unknown]
  - Blister [Recovering/Resolving]
